FAERS Safety Report 8541244 (Version 6)
Quarter: 2012Q4

REPORT INFORMATION
  Report Type: 
  Country: CA (occurrence: CA)
  Receive Date: 20120502
  Receipt Date: 20120830
  Transmission Date: 20130627
  Serious: Yes (Other)
  Sender: FDA-Public Use
  Company Number: PHHY2012CA005283

PATIENT
  Age: 54 Year
  Sex: Female

DRUGS (5)
  1. ALERTEC [Concomitant]
     Dosage: UNK UKN, UNK
  2. GILENYA [Suspect]
     Indication: RELAPSING-REMITTING MULTIPLE SCLEROSIS
     Dosage: 0.5 mg, QD
     Route: 048
     Dates: start: 20120119
  3. GILENYA [Suspect]
     Dosage: 0.5 mg, BID ( patient took Gilenya in the morning as usual, however she took it again in evening)
     Route: 048
     Dates: start: 20120204
  4. GILENYA [Suspect]
     Dosage: 0.5 mg, QD
     Route: 048
  5. LYRICA [Concomitant]
     Dosage: UNK UKN, UNK

REACTIONS (3)
  - Blood pressure increased [Recovered/Resolved]
  - Headache [Recovered/Resolved]
  - Accidental overdose [Unknown]
